FAERS Safety Report 4918667-8 (Version None)
Quarter: 2006Q1

REPORT INFORMATION
  Report Type: 
  Country: None (occurrence: None)
  Receive Date: 20060222
  Receipt Date: 20060126
  Transmission Date: 20060701
  Serious: Yes (Other)
  Sender: FDA-Public Use
  Company Number: 2006AP00458

PATIENT
  Age: 67 Year
  Sex: Male

DRUGS (4)
  1. MEROPEN [Suspect]
     Indication: PANCREATITIS ACUTE
     Route: 041
     Dates: start: 20051122, end: 20051127
  2. FOY [Suspect]
     Indication: PANCREATITIS ACUTE
     Route: 041
     Dates: start: 20051122, end: 20051128
  3. MIRACLID [Concomitant]
     Indication: PANCREATITIS ACUTE
     Dosage: 0.3 MIU
     Route: 042
     Dates: start: 20051122, end: 20051124
  4. NICHOLIN [Concomitant]
     Indication: PANCREATITIS ACUTE
     Route: 041
     Dates: start: 20051122, end: 20051210

REACTIONS (1)
  - PANCYTOPENIA [None]
